FAERS Safety Report 25260925 (Version 3)
Quarter: 2025Q4

REPORT INFORMATION
  Report Type: Spontaneous
  Country: EU (occurrence: EU)
  Receive Date: 20250501
  Receipt Date: 20251003
  Transmission Date: 20260117
  Serious: Yes (Hospitalization, Other)
  Sender: BRISTOL-MYERS SQUIBB COMPANY
  Company Number: EU-BRISTOL-MYERS SQUIBB COMPANY-2025-062346

PATIENT
  Age: 68 Year
  Sex: Female
  Weight: 80 kg

DRUGS (8)
  1. ELIQUIS [Suspect]
     Active Substance: APIXABAN
     Indication: Deep vein thrombosis
     Dosage: APPROXIMATELY 2019
     Dates: start: 2019
  2. ELIQUIS [Suspect]
     Active Substance: APIXABAN
  3. ELIQUIS [Suspect]
     Active Substance: APIXABAN
  4. PENTAERYTHRITOL TETRANITRATE [Concomitant]
     Active Substance: PENTAERYTHRITOL TETRANITRATE
     Indication: Product used for unknown indication
  5. PENTAERYTHRITOL TETRANITRATE [Concomitant]
     Active Substance: PENTAERYTHRITOL TETRANITRATE
  6. BISOPROLOL [Concomitant]
     Active Substance: BISOPROLOL
     Indication: Product used for unknown indication
  7. ATORVASTATIN [Concomitant]
     Active Substance: ATORVASTATIN
     Indication: Product used for unknown indication
     Dosage: 0-0-1, IN EVENING
  8. PEMBROLIZUMAB [Concomitant]
     Active Substance: PEMBROLIZUMAB
     Indication: Product used for unknown indication

REACTIONS (4)
  - Drug ineffective [Recovering/Resolving]
  - Axillary vein thrombosis [Recovering/Resolving]
  - Atrial tachycardia [Unknown]
  - Subclavian vein thrombosis [Recovering/Resolving]

NARRATIVE: CASE EVENT DATE: 20250401
